FAERS Safety Report 17817210 (Version 1)
Quarter: 2020Q2

REPORT INFORMATION
  Report Type: Spontaneous
  Country: US (occurrence: US)
  Receive Date: 20200522
  Receipt Date: 20200522
  Transmission Date: 20200714
  Serious: No
  Sender: FDA-Public Use
  Company Number: US-TEVA-2020-US-1239631

PATIENT
  Sex: Female

DRUGS (3)
  1. NIZATIDINE ACTAVIS [Suspect]
     Active Substance: NIZATIDINE
     Route: 065
  2. FAMOTIDINE ACTAVIS [Suspect]
     Active Substance: FAMOTIDINE
     Route: 065
  3. RANITIDINE ACTAVIS [Suspect]
     Active Substance: RANITIDINE
     Route: 065

REACTIONS (1)
  - Adverse drug reaction [Unknown]
